FAERS Safety Report 7207649-1 (Version None)
Quarter: 2011Q1

REPORT INFORMATION
  Report Type: 
  Country: None (occurrence: None)
  Receive Date: 20110103
  Receipt Date: 20101228
  Transmission Date: 20110831
  Serious: Yes (Hospitalization)
  Sender: FDA-Public Use
  Company Number: US-GENZYME-POMP-1001266

PATIENT
  Sex: Male

DRUGS (4)
  1. MYOZYME [Suspect]
     Dosage: 20 MG/KG, Q2W
     Route: 042
     Dates: start: 20060911, end: 20070425
  2. MYOZYME [Suspect]
     Dosage: 40 MG/KG, Q2W
     Route: 042
     Dates: start: 20070801
  3. MYOZYME [Suspect]
     Dosage: 30 MG/KG, Q2W
     Route: 042
     Dates: start: 20070509, end: 20070701
  4. MYOZYME [Suspect]
     Indication: GLYCOGEN STORAGE DISEASE TYPE II
     Dosage: 20 MG/KG, Q2W
     Route: 042

REACTIONS (2)
  - INCREASED UPPER AIRWAY SECRETION [None]
  - PYREXIA [None]
